FAERS Safety Report 5167301-3 (Version None)
Quarter: 2006Q4

REPORT INFORMATION
  Report Type: 
  Country: None (occurrence: None)
  Receive Date: 20061130
  Receipt Date: 20061114
  Transmission Date: 20070319
  Serious: Yes (Other)
  Sender: FDA-Public Use
  Company Number: DSA_28997_2006

PATIENT

DRUGS (2)
  1. ATIVAN [Suspect]
     Dosage: DF UNK PO
     Route: 048
  2. AMBIEN [Suspect]
     Dosage: DF UNK PO
     Route: 048

REACTIONS (3)
  - ABNORMAL SLEEP-RELATED EVENT [None]
  - DRUG INTERACTION [None]
  - SLEEP WALKING [None]
